FAERS Safety Report 7545144-0 (Version None)
Quarter: 2011Q2

REPORT INFORMATION
  Report Type: 
  Country: None (occurrence: None)
  Receive Date: 20110531
  Receipt Date: 20110523
  Transmission Date: 20111010
  Serious: Yes (Other)
  Sender: FDA-Public Use
  Company Number: 2011028626

PATIENT
  Age: 57 Year
  Sex: Female
  Weight: 71.6683 kg

DRUGS (11)
  1. RESTASIS [Concomitant]
  2. PAXIL [Concomitant]
  3. HIZENTRA [Suspect]
     Indication: IMMUNODEFICIENCY COMMON VARIABLE
     Dosage: SEE IMAGE: SUBCUTANEOUS
     Route: 058
     Dates: start: 20110318
  4. MACROBID [Concomitant]
  5. PREDNISONE [Concomitant]
  6. TOPROL-XL [Concomitant]
  7. HIZENTRA [Suspect]
     Indication: IMMUNODEFICIENCY COMMON VARIABLE
     Dosage: SEE IMAGE: SUBCUTANEOUS
     Route: 058
     Dates: start: 20110511
  8. ASTELIN (DIPROPHYLINE) [Concomitant]
  9. DOXYCYCLINE [Concomitant]
  10. NORVASC [Concomitant]
  11. KLONOPIN [Concomitant]

REACTIONS (5)
  - INCREASED TENDENCY TO BRUISE [None]
  - INFUSION SITE SWELLING [None]
  - CYSTITIS [None]
  - UPPER RESPIRATORY TRACT INFECTION [None]
  - INFUSION SITE ERYTHEMA [None]
